FAERS Safety Report 7135981 (Version 3)
Quarter: 2020Q3

REPORT INFORMATION
  Report Type: Report from Study
  Country: US (occurrence: US)
  Receive Date: 20091001
  Receipt Date: 20091127
  Transmission Date: 20201105
  Serious: Yes (Hospitalization, Other)
  Sender: FDA-Public Use
  Company Number: US-ROCHE-659170

PATIENT
  Age: 64 Year
  Sex: Female
  Weight: 76.2 kg

DRUGS (14)
  1. IBANDRONIC ACID. [Suspect]
     Active Substance: IBANDRONIC ACID
     Route: 048
     Dates: end: 200804
  2. FOLIC ACID. [Concomitant]
     Active Substance: FOLIC ACID
     Dosage: LAST DOSE 20 JANUARY 2007
     Route: 048
  3. GLIPIZIDE. [Concomitant]
     Active Substance: GLIPIZIDE
     Dosage: DRUG NAME REPORTED AS GLIPIZIDE ER
     Route: 048
  4. ASPIRIN. [Concomitant]
     Active Substance: ASPIRIN
     Indication: PROPHYLAXIS
     Dosage: LAST DOSE 20 JANUARY 2007
     Route: 048
  5. ESOMEPRAZOLE. [Concomitant]
     Active Substance: ESOMEPRAZOLE MAGNESIUM
     Indication: GASTRIC DISORDER
     Dosage: LAST DOSE 20 JANUARY 2007
     Route: 048
  6. SYNTHROID [Concomitant]
     Active Substance: LEVOTHYROXINE SODIUM
     Indication: HYPOTHYROIDISM
     Dosage: 0.05 MG ALTERNATING WITH 0.075 MG DAILY; LAST DOSE 20 JANUARY 2007
     Route: 048
  7. CRYSTALLINE VIT B12 INJ [Concomitant]
  8. FEMARA [Concomitant]
     Active Substance: LETROZOLE
     Indication: BREAST CANCER
     Dosage: BY MOUTH AT NIGHT; LAST DOSE 19 JANUARY 2007
     Route: 048
  9. KEFLEX [Concomitant]
     Active Substance: CEPHALEXIN
     Indication: PROPHYLAXIS
     Route: 048
     Dates: start: 20070120
  10. AMBIEN [Suspect]
     Active Substance: ZOLPIDEM TARTRATE
     Indication: INSOMNIA
     Dosage: BY MOUTH AT NIGHT
     Route: 048
     Dates: start: 20070119, end: 20070122
  11. IBANDRONIC ACID. [Suspect]
     Active Substance: IBANDRONIC ACID
     Indication: OSTEOPOROSIS
     Dosage: DRUG TAKEN ON EVERY 22ND DATE OF THE MONTH
     Route: 048
     Dates: start: 20060224
  12. TYLENOL WITH CODEINE [Suspect]
     Active Substance: ACETAMINOPHEN\CODEINE PHOSPHATE
     Indication: PAIN
     Dosage: 1?2 TABLETS EVERY FOUR HOURS AS NEEDED
     Route: 048
     Dates: start: 20070120, end: 20070122
  13. SKELAXIN [Concomitant]
     Active Substance: METAXALONE
     Dosage: LAST DOSE 20 JANUARY 2007
     Route: 048
  14. DETROL [Concomitant]
     Active Substance: TOLTERODINE TARTRATE
     Indication: BLADDER SPASM
     Route: 048

REACTIONS (8)
  - Syncope [Recovered/Resolved]
  - Malocclusion [Unknown]
  - Implant site extravasation [Unknown]
  - Dizziness [Unknown]
  - Skin laceration [Unknown]
  - Mental disorder [Unknown]
  - Malaise [Unknown]
  - Jaw fracture [Recovered/Resolved]

NARRATIVE: CASE EVENT DATE: 20060101
